FAERS Safety Report 13400801 (Version 2)
Quarter: 2017Q2

REPORT INFORMATION
  Report Type: Spontaneous
  Country: US (occurrence: US)
  Receive Date: 20170404
  Receipt Date: 20170627
  Transmission Date: 20170830
  Serious: No
  Sender: FDA-Public Use
  Company Number: GXBR2017US001268

PATIENT
  Sex: Female

DRUGS (1)
  1. BIMATOPROST. [Suspect]
     Active Substance: BIMATOPROST
     Indication: MADAROSIS
     Dosage: 1 GTT, QHS
     Route: 065
     Dates: start: 20170303, end: 20170324

REACTIONS (3)
  - Ocular hyperaemia [Unknown]
  - Eye inflammation [Unknown]
  - Skin discolouration [Unknown]
